FAERS Safety Report 4626829-2 (Version None)
Quarter: 2005Q2

REPORT INFORMATION
  Report Type: 
  Country: None (occurrence: None)
  Receive Date: 20050401
  Receipt Date: 20050401
  Transmission Date: 20051028
  Serious: No
  Sender: FDA-Public Use
  Company Number: None

PATIENT
  Sex: Male
  Weight: 109.4 kg

DRUGS (3)
  1. METHOTREXATE [Suspect]
     Dosage: 3 G/M2 IV OVER 2 HR ON DAYS 1,8 AND 22
     Route: 042
     Dates: start: 20041213
  2. ELSPAR [Suspect]
     Dosage: 10000 UNIT/M2 IV OVER 30 ON DAYS 2,9 AND 23
     Route: 042
  3. LEUCOVORIN CALCIUM [Suspect]
     Dosage: 10 MG/M2 IV Q6HR FOR 4 DOSES 22-24 HR AFTER EACH METHOTREXATE INFUSION
     Route: 042

REACTIONS (7)
  - BLOOD CREATININE INCREASED [None]
  - BLOOD URIC ACID INCREASED [None]
  - DRUG HYPERSENSITIVITY [None]
  - FACE OEDEMA [None]
  - INFUSION RELATED REACTION [None]
  - OEDEMA PERIPHERAL [None]
  - URTICARIA [None]
